FAERS Safety Report 5649207-6 (Version None)
Quarter: 2008Q1

REPORT INFORMATION
  Report Type: 
  Country: None (occurrence: None)
  Receive Date: 20080131
  Receipt Date: 20070928
  Transmission Date: 20080703
  Serious: No
  Sender: FDA-Public Use
  Company Number: US200709006769

PATIENT
  Age: 54 Year
  Sex: Male

DRUGS (2)
  1. BYETTA [Suspect]
     Indication: TYPE 2 DIABETES MELLITUS
     Dosage: 5 UG,; 10 UG, SUBUCTANEOUS
     Route: 058
     Dates: start: 20070901
  2. AVANDAMET [Concomitant]

REACTIONS (1)
  - BLOOD GLUCOSE INCREASED [None]
